FAERS Safety Report 24325258 (Version 1)
Quarter: 2024Q3

REPORT INFORMATION
  Report Type: Spontaneous
  Country: US (occurrence: US)
  Receive Date: 20240916
  Receipt Date: 20240916
  Transmission Date: 20241017
  Serious: No
  Sender: ABBVIE
  Company Number: US-ABBVIE-5916672

PATIENT
  Age: 46 Year
  Sex: Male
  Weight: 64.41 kg

DRUGS (1)
  1. LUPRON DEPOT [Suspect]
     Active Substance: LEUPROLIDE ACETATE
     Indication: Granulosa cell tumour of the testis
     Dosage: FORM STRENGTH: 7.5 MILLIGRAM
     Route: 030
     Dates: start: 20230511

REACTIONS (2)
  - Pain [Recovered/Resolved]
  - Off label use [Not Recovered/Not Resolved]

NARRATIVE: CASE EVENT DATE: 20240905
